FAERS Safety Report 6899438-2 (Version None)
Quarter: 2010Q3

REPORT INFORMATION
  Report Type: 
  Country: None (occurrence: None)
  Receive Date: 20100803
  Receipt Date: 20090623
  Transmission Date: 20110219
  Serious: No
  Sender: FDA-Public Use
  Company Number: US-PFIZER INC-2009175479

PATIENT

DRUGS (2)
  1. FLAGYL [Suspect]
     Dosage: UNK
  2. CIPROFLOXACIN [Suspect]
     Indication: DIVERTICULITIS

REACTIONS (1)
  - ADVERSE REACTION [None]
